FAERS Safety Report 4417555-3 (Version None)
Quarter: 2004Q2

REPORT INFORMATION
  Report Type: 
  Country: None (occurrence: None)
  Receive Date: 20040625
  Receipt Date: 20040322
  Transmission Date: 20050107
  Serious: No
  Sender: FDA-Public Use
  Company Number: 205407

PATIENT
  Sex: Male

DRUGS (1)
  1. AVASTIN [Suspect]
     Dosage: 5 MG/KG, INTRAVENOUS
     Route: 042
     Dates: start: 20040316

REACTIONS (1)
  - CHEST DISCOMFORT [None]
